FAERS Safety Report 12173614 (Version 1)
Quarter: 2016Q1

REPORT INFORMATION
  Report Type: Spontaneous
  Country: US (occurrence: None)
  Receive Date: 20160311
  Receipt Date: 20160311
  Transmission Date: 20160526
  Serious: Yes (Disabling)
  Sender: FDA-Public Use
  Company Number: None

PATIENT
  Age: 61 Year
  Sex: Female

DRUGS (6)
  1. MELATONIN [Concomitant]
     Active Substance: MELATONIN
  2. CIPROFLOXACIN HCL 250MG TAB DR. RE 55111-0126-01 [Suspect]
     Active Substance: CIPROFLOXACIN HYDROCHLORIDE
     Indication: URINARY TRACT INFECTION
     Route: 048
     Dates: start: 20110502, end: 20110509
  3. VITAMIN SUPPLEMENT [Concomitant]
     Active Substance: VITAMINS
  4. PREDNISONE. [Concomitant]
     Active Substance: PREDNISONE
  5. ALEVE [Concomitant]
     Active Substance: NAPROXEN SODIUM
  6. METHOTREXATE [Concomitant]
     Active Substance: METHOTREXATE

REACTIONS (5)
  - Pyrexia [None]
  - C-reactive protein increased [None]
  - Malaise [None]
  - Tendon injury [None]
  - Polymyalgia rheumatica [None]

NARRATIVE: CASE EVENT DATE: 20110502
